FAERS Safety Report 6271445-2 (Version None)
Quarter: 2009Q3

REPORT INFORMATION
  Report Type: 
  Country: None (occurrence: None)
  Receive Date: 20090717
  Receipt Date: 20090706
  Transmission Date: 20100115
  Serious: Yes (Hospitalization, Other)
  Sender: FDA-Public Use
  Company Number: PHEH2009US07131

PATIENT
  Age: 76 Year
  Sex: Female

DRUGS (6)
  1. DIOVAN [Suspect]
     Dosage: 160 MG, UNK
  2. COUMADIN [Suspect]
  3. VERAPAMIL [Suspect]
     Dosage: 240 MG, UNK
  4. ADVIL [Concomitant]
  5. TYLENOL (CAPLET) [Concomitant]
  6. SIMVASTATIN [Concomitant]
     Dosage: 5 MG, UNK

REACTIONS (12)
  - ABASIA [None]
  - ACCIDENT [None]
  - ACTIVITIES OF DAILY LIVING IMPAIRED [None]
  - ANAEMIA [None]
  - BLOOD DISORDER [None]
  - GASTRIC DISORDER [None]
  - HIP FRACTURE [None]
  - INCORRECT DOSE ADMINISTERED [None]
  - PAIN [None]
  - SPEECH DISORDER [None]
  - TOOTH LOSS [None]
  - URINARY INCONTINENCE [None]
